FAERS Safety Report 26143574 (Version 1)
Quarter: 2025Q4

REPORT INFORMATION
  Report Type: Report from Study
  Country: CA (occurrence: CA)
  Receive Date: 20251211
  Receipt Date: 20251211
  Transmission Date: 20260118
  Serious: Yes (Hospitalization)
  Sender: ABBVIE
  Company Number: CA-ABBVIE-6578954

PATIENT
  Age: 59 Year
  Sex: Female

DRUGS (1)
  1. RINVOQ [Suspect]
     Active Substance: UPADACITINIB
     Indication: Crohn^s disease
     Route: 048

REACTIONS (14)
  - Ocular icterus [Unknown]
  - Conjunctivitis [Unknown]
  - Papule [Unknown]
  - Hepatic steatosis [Unknown]
  - Abdominal distension [Recovering/Resolving]
  - Abdominal pain [Not Recovered/Not Resolved]
  - Faecal calprotectin decreased [Unknown]
  - Diarrhoea [Unknown]
  - Arthralgia [Unknown]
  - Anal fissure [Unknown]
  - Conjunctivitis [Recovered/Resolved]
  - Papule [Recovered/Resolved]
  - Therapeutic product effect decreased [Unknown]
  - Inflammation [Unknown]

NARRATIVE: CASE EVENT DATE: 20250101
